FAERS Safety Report 8110415 (Version 3)
Quarter: 2013Q2

REPORT INFORMATION
  Report Type: Spontaneous
  Country: US (occurrence: US)
  Receive Date: 20110829
  Receipt Date: 20130618
  Transmission Date: 20140414
  Serious: Yes (Hospitalization)
  Sender: FDA-Public Use
  Company Number: US-BAYER-2011-074868

PATIENT
  Age: 30 Year
  Sex: Female
  Weight: 48.98 kg

DRUGS (7)
  1. YAZ [Suspect]
     Dosage: UNK
     Route: 048
  2. YASMIN [Suspect]
     Dosage: UNK
     Route: 048
     Dates: start: 200606, end: 200910
  3. OCELLA [Suspect]
     Dosage: UNK
     Dates: start: 200606, end: 200910
  4. HERBAL PREPARATION [Concomitant]
  5. OMEGA 3 [Concomitant]
  6. SPIRULINA [Concomitant]
  7. METRONIDAZOLE [Concomitant]
     Dosage: 0.75%
     Route: 067

REACTIONS (3)
  - Subclavian vein thrombosis [None]
  - Injury [None]
  - Pain [None]
